FAERS Safety Report 9163212 (Version 1)
Quarter: 2013Q1

REPORT INFORMATION
  Report Type: Spontaneous
  Country: FR (occurrence: FR)
  Receive Date: 20130314
  Receipt Date: 20130314
  Transmission Date: 20140127
  Serious: Yes (Hospitalization)
  Sender: FDA-Public Use
  Company Number: FR-ROCHE-1200601

PATIENT
  Age: 17 Year
  Sex: Male

DRUGS (5)
  1. TAMIFLU [Suspect]
     Indication: H1N1 INFLUENZA
     Route: 048
     Dates: start: 20100114, end: 20100116
  2. MINOCYCLINE [Suspect]
     Indication: URETHRITIS
     Route: 048
     Dates: start: 20091230, end: 20100114
  3. ADVIL [Suspect]
     Indication: H1N1 INFLUENZA
     Route: 048
     Dates: start: 20100114
  4. DOLIPRANE [Suspect]
     Indication: H1N1 INFLUENZA
     Route: 048
     Dates: start: 20100114
  5. CANTHARIS [Suspect]
     Indication: URETHRITIS
     Route: 048
     Dates: start: 20091230, end: 20100114

REACTIONS (1)
  - Drug reaction with eosinophilia and systemic symptoms [Recovered/Resolved]
